FAERS Safety Report 4553189-8 (Version None)
Quarter: 2005Q1

REPORT INFORMATION
  Report Type: 
  Country: None (occurrence: None)
  Receive Date: 20050113
  Receipt Date: 20050104
  Transmission Date: 20050727
  Serious: Yes (Other)
  Sender: FDA-Public Use
  Company Number: HQWYE671018JUN03

PATIENT
  Age: 56 Year
  Sex: Female
  Weight: 66.28 kg

DRUGS (13)
  1. CYCLOSPORINE [Suspect]
     Indication: PROPHYLAXIS AGAINST TRANSPLANT REJECTION
     Dosage: 75 MG 2X PER 1 DAY, ORAL; 175 MG 1X PER 1 DAY, ORAL; 150 MG 1X PER 1 DAY, ORAL
     Route: 048
     Dates: start: 20021216, end: 20021216
  2. CYCLOSPORINE [Suspect]
     Indication: PROPHYLAXIS AGAINST TRANSPLANT REJECTION
     Dosage: 75 MG 2X PER 1 DAY, ORAL; 175 MG 1X PER 1 DAY, ORAL; 150 MG 1X PER 1 DAY, ORAL
     Route: 048
     Dates: start: 20021217, end: 20030114
  3. CYCLOSPORINE [Suspect]
     Indication: PROPHYLAXIS AGAINST TRANSPLANT REJECTION
     Dosage: 75 MG 2X PER 1 DAY, ORAL; 175 MG 1X PER 1 DAY, ORAL; 150 MG 1X PER 1 DAY, ORAL
     Route: 048
     Dates: start: 20030115
  4. MYCOPHENOLATE MOFETIL (MYCOPHENOLATE MOFETIL) [Concomitant]
  5. PREDNISONE [Concomitant]
  6. CALCITRIOL [Concomitant]
  7. TUMS (CALCIUM CARBONATE/MAGNESIUM CARBONATE/ MAGNESIUM TRISILICATE) [Concomitant]
  8. ZOLPIDEM TARTRATE [Concomitant]
  9. TIMOLOL MALEATE [Concomitant]
  10. REFRESH (POLYVIDONE/POLYVINYL ALCOHOL) [Concomitant]
  11. ENALAPRIL MALEATE [Concomitant]
  12. METOPROLOL SUCCINATE [Concomitant]
  13. ATORVASTATIN CALCIUM [Concomitant]

REACTIONS (1)
  - BREAST CANCER FEMALE [None]
